FAERS Safety Report 18502173 (Version 3)
Quarter: 2020Q4

REPORT INFORMATION
  Report Type: Spontaneous
  Country: FI (occurrence: FI)
  Receive Date: 20201113
  Receipt Date: 20201228
  Transmission Date: 20210114
  Serious: Yes (Congenital Anomaly, Other)
  Sender: FDA-Public Use
  Company Number: FI-UCBSA-2020044823

PATIENT

DRUGS (9)
  1. PREDNISOLON [Concomitant]
     Active Substance: PREDNISOLONE
     Dosage: 5,MG,DAILY
     Route: 064
  2. CIMZIA [Suspect]
     Active Substance: CERTOLIZUMAB PEGOL
     Indication: OLIGOARTHRITIS
     Dosage: UNK
     Route: 064
  3. THYROXIN [Concomitant]
     Active Substance: LEVOTHYROXINE
     Route: 064
  4. OXIKLORIN [Concomitant]
     Active Substance: HYDROXYCHLOROQUINE SULFATE
     Dosage: 300,MG,DAILY
     Route: 064
  5. METHOTREXATE. [Concomitant]
     Active Substance: METHOTREXATE
  6. IMUREL [Concomitant]
     Active Substance: AZATHIOPRINE SODIUM
     Dosage: 150,MG,DAILY
     Route: 064
  7. CIMZIA [Suspect]
     Active Substance: CERTOLIZUMAB PEGOL
     Dosage: UNK
     Route: 064
     Dates: start: 20200605, end: 202008
  8. FOLIC ACID. [Concomitant]
     Active Substance: FOLIC ACID
     Dosage: 5,MG,WEEKLY
     Route: 064
  9. INFLIXIMAB [Suspect]
     Active Substance: INFLIXIMAB
     Indication: OLIGOARTHRITIS
     Dosage: UNK
     Route: 064
     Dates: start: 2020, end: 2020

REACTIONS (2)
  - Maternal exposure during pregnancy [Unknown]
  - VACTERL syndrome [Not Recovered/Not Resolved]

NARRATIVE: CASE EVENT DATE: 2020
